FAERS Safety Report 13222634 (Version 1)
Quarter: 2017Q1

REPORT INFORMATION
  Report Type: Other
  Country: US (occurrence: US)
  Receive Date: 20170212
  Receipt Date: 20170212
  Transmission Date: 20170428
  Serious: No
  Sender: FDA-Public Use
  Company Number: US-ACORDA-ACO_122194_2016

PATIENT
  Age: 52 Year
  Sex: Female

DRUGS (3)
  1. NEURONTIN [Concomitant]
     Active Substance: GABAPENTIN
     Dosage: 150 MG, UNK
     Route: 065
  2. AMPYRA [Suspect]
     Active Substance: DALFAMPRIDINE
     Dosage: 10 MG, ONCE
     Route: 048
     Dates: start: 20160205, end: 20160205
  3. AMPYRA [Suspect]
     Active Substance: DALFAMPRIDINE
     Indication: GAIT DISTURBANCE
     Dosage: 10 MG, ONCE
     Route: 048
     Dates: start: 20160203, end: 20160203

REACTIONS (5)
  - Vertigo [Recovered/Resolved]
  - Nausea [Recovered/Resolved]
  - Gait disturbance [Recovered/Resolved]
  - Dizziness [Recovered/Resolved]
  - Feeling drunk [Recovered/Resolved]

NARRATIVE: CASE EVENT DATE: 20160203
